FAERS Safety Report 4635230-7 (Version None)
Quarter: 2005Q2

REPORT INFORMATION
  Report Type: 
  Country: None (occurrence: None)
  Receive Date: 20050411
  Receipt Date: 20050321
  Transmission Date: 20051028
  Serious: Yes (Hospitalization, Other)
  Sender: FDA-Public Use
  Company Number: 8009632

PATIENT
  Age: 62 Year
  Sex: Male

DRUGS (2)
  1. KEPPRA [Suspect]
     Indication: CONVULSION PROPHYLAXIS
     Dosage: PO
     Route: 048
     Dates: start: 20041001
  2. UNSPECIFIED ANTIEPILEPTIC MEDICATION [Concomitant]

REACTIONS (3)
  - HIP ARTHROPLASTY [None]
  - OPERATIVE HAEMORRHAGE [None]
  - VASCULAR INJURY [None]
